FAERS Safety Report 21336202 (Version 7)
Quarter: 2023Q1

REPORT INFORMATION
  Report Type: Spontaneous
  Country: CA (occurrence: CA)
  Receive Date: 20220915
  Receipt Date: 20230327
  Transmission Date: 20230418
  Serious: Yes (Hospitalization, Other)
  Sender: FDA-Public Use
  Company Number: CA-CELLTRION INC.-2022CA010119

PATIENT

DRUGS (14)
  1. INFLECTRA [Suspect]
     Active Substance: INFLIXIMAB-DYYB
     Indication: Crohn^s disease
     Dosage: 400MG, WEEK 0, 2, 6 THEN EVERY 8 WEEKS
     Route: 042
     Dates: start: 20220223
  2. INFLECTRA [Suspect]
     Active Substance: INFLIXIMAB-DYYB
     Dosage: 400 MG, WEEK 0, 2, 6 THEN EVERY 8 WEEKS
     Route: 042
     Dates: start: 20220407
  3. INFLECTRA [Suspect]
     Active Substance: INFLIXIMAB-DYYB
     Dosage: 400 MG, WEEK 0, 2, 6 THEN EVERY 8 WEEKS
     Route: 042
     Dates: start: 20220602
  4. INFLECTRA [Suspect]
     Active Substance: INFLIXIMAB-DYYB
     Dosage: 400 MG, WEEK 0, 2, 6 THEN EVERY 8 WEEKS
     Route: 042
     Dates: start: 20220727, end: 20220727
  5. INFLECTRA [Suspect]
     Active Substance: INFLIXIMAB-DYYB
     Dosage: 800 MG, EVERY 8 WEEKS
     Route: 042
     Dates: start: 20220909
  6. INFLECTRA [Suspect]
     Active Substance: INFLIXIMAB-DYYB
     Dosage: 800 MG, EVERY 8 WEEKS
     Route: 042
     Dates: start: 20220909, end: 20221116
  7. INFLECTRA [Suspect]
     Active Substance: INFLIXIMAB-DYYB
     Dosage: 800MG EVERY 8 WEEKS
     Route: 042
     Dates: start: 20221116
  8. INFLECTRA [Suspect]
     Active Substance: INFLIXIMAB-DYYB
     Dosage: 800MG EVERY 6 WEEKS
     Route: 042
     Dates: start: 20221230
  9. INFLECTRA [Suspect]
     Active Substance: INFLIXIMAB-DYYB
     Dosage: 800MG EVERY 6 WEEKS
     Route: 042
     Dates: start: 20230210
  10. INFLECTRA [Suspect]
     Active Substance: INFLIXIMAB-DYYB
     Dosage: 800MG EVERY 6 WEEKS
     Route: 042
     Dates: start: 20230318
  11. ENTOCORT [Concomitant]
     Active Substance: BUDESONIDE
     Dosage: 9 MG DAILY BUT JUST FOR 4 WEEKS
  12. ENTOCORT [Concomitant]
     Active Substance: BUDESONIDE
     Dosage: 1 DF, DOSAGE INFORMATION NOT AVAILABLE
     Route: 065
  13. VITAMIN B12 [Concomitant]
     Active Substance: CYANOCOBALAMIN
     Dosage: UNK
  14. CHOLECALCIFEROL [Concomitant]
     Active Substance: CHOLECALCIFEROL
     Dosage: UNK

REACTIONS (10)
  - Crohn^s disease [Recovering/Resolving]
  - Vomiting [Recovering/Resolving]
  - Intestinal obstruction [Unknown]
  - Off label use [Unknown]
  - Inappropriate schedule of product administration [Unknown]
  - Therapeutic response decreased [Unknown]
  - Condition aggravated [Recovered/Resolved]
  - Fatigue [Unknown]
  - Aphthous ulcer [Unknown]
  - Stasis syndrome [Unknown]

NARRATIVE: CASE EVENT DATE: 20220101
